FAERS Safety Report 16047012 (Version 1)
Quarter: 2019Q1

REPORT INFORMATION
  Report Type: Spontaneous
  Country: US (occurrence: US)
  Receive Date: 20190307
  Receipt Date: 20190307
  Transmission Date: 20190418
  Serious: Yes (Other)
  Sender: FDA-Public Use
  Company Number: US-BAYER-2019-046422

PATIENT
  Age: 47 Year
  Sex: Female
  Weight: 80 kg

DRUGS (1)
  1. BAYER LOW DOSE [Suspect]
     Active Substance: ASPIRIN
     Dosage: 2 DF, BID
     Route: 048
     Dates: start: 1990

REACTIONS (3)
  - Cardiac operation [None]
  - Arrhythmia [None]
  - Product use issue [Unknown]

NARRATIVE: CASE EVENT DATE: 1990
